FAERS Safety Report 25332199 (Version 1)
Quarter: 2025Q2

REPORT INFORMATION
  Report Type: Spontaneous
  Country: TW (occurrence: TW)
  Receive Date: 20250519
  Receipt Date: 20250519
  Transmission Date: 20250716
  Serious: Yes (Life-Threatening, Hospitalization)
  Sender: TAIHO ONCOLOGY INC
  Company Number: TW-TTY-TTY2025TW000020

PATIENT
  Age: 70 Year
  Sex: Male

DRUGS (12)
  1. LONSURF [Suspect]
     Active Substance: TIPIRACIL HYDROCHLORIDE\TRIFLURIDINE
     Indication: Product used for unknown indication
     Route: 048
     Dates: start: 20240718, end: 20250106
  2. ONIVYDE [Suspect]
     Active Substance: IRINOTECAN HYDROCHLORIDE
     Indication: Product used for unknown indication
     Route: 042
     Dates: start: 20240718, end: 20250102
  3. CYRAMZA [Suspect]
     Active Substance: RAMUCIRUMAB
     Indication: Product used for unknown indication
     Route: 042
     Dates: start: 20240718, end: 20250102
  4. NOVAMIN [Concomitant]
     Indication: Product used for unknown indication
     Dosage: AFTER FOOD
     Route: 048
  5. GASMIN [Concomitant]
     Indication: Product used for unknown indication
     Dosage: AFTER FOOD AND AT BED TIME
     Route: 048
  6. FAMO [Concomitant]
     Indication: Product used for unknown indication
     Route: 048
  7. RABEPRAZOLE SODIUM [Concomitant]
     Active Substance: RABEPRAZOLE SODIUM
     Indication: Product used for unknown indication
     Dosage: ENTERIC COATED, BEFORE FOOD
     Route: 048
  8. ATOZET FC [Concomitant]
     Indication: Product used for unknown indication
     Route: 048
  9. NEBIVOLOL [Concomitant]
     Active Substance: NEBIVOLOL
     Indication: Product used for unknown indication
  10. EURICON [Concomitant]
     Indication: Product used for unknown indication
     Route: 048
  11. TAMSULOSIN HYDROCHLORIDE [Concomitant]
     Active Substance: TAMSULOSIN HYDROCHLORIDE
     Indication: Product used for unknown indication
     Dosage: PROLONGED RELEASE
     Route: 048
  12. NIFEDIPINE [Concomitant]
     Active Substance: NIFEDIPINE
     Indication: Product used for unknown indication
     Route: 048

REACTIONS (2)
  - Neutropenia [Recovered/Resolved]
  - Gastric perforation [Recovered/Resolved with Sequelae]

NARRATIVE: CASE EVENT DATE: 20250106
